FAERS Safety Report 6360767-2 (Version None)
Quarter: 2009Q3

REPORT INFORMATION
  Report Type: 
  Country: None (occurrence: None)
  Receive Date: 20090918
  Receipt Date: 20090528
  Transmission Date: 20100115
  Serious: Yes (Other)
  Sender: FDA-Public Use
  Company Number: AU-JNJFOC-20090600290

PATIENT
  Sex: Female
  Weight: 3 kg

DRUGS (4)
  1. TOPAMAX [Suspect]
     Indication: DRUG EXPOSURE DURING PREGNANCY
  2. VALPROATE SODIUM [Concomitant]
     Indication: DRUG EXPOSURE DURING PREGNANCY
  3. MULTI-VITAMINS [Concomitant]
     Indication: DRUG EXPOSURE DURING PREGNANCY
  4. IRON [Concomitant]
     Indication: DRUG EXPOSURE DURING PREGNANCY

REACTIONS (1)
  - OXYGEN SUPPLEMENTATION [None]
